FAERS Safety Report 23014014 (Version 1)
Quarter: 2023Q4

REPORT INFORMATION
  Report Type: Spontaneous
  Country: US (occurrence: US)
  Receive Date: 20231002
  Receipt Date: 20231002
  Transmission Date: 20240110
  Serious: No
  Sender: FDA-Public Use
  Company Number: US-drreddys-SPO/USA/23/0175283

PATIENT
  Age: 37 Year
  Sex: Male

DRUGS (5)
  1. DIVALPROEX SODIUM [Suspect]
     Active Substance: DIVALPROEX SODIUM
     Indication: Product used for unknown indication
  2. XYREM [Suspect]
     Active Substance: SODIUM OXYBATE
     Indication: Myoclonus
     Route: 048
     Dates: start: 201705, end: 201707
  3. XYREM [Suspect]
     Active Substance: SODIUM OXYBATE
     Route: 048
     Dates: start: 201707
  4. KEPPRA [Concomitant]
     Active Substance: LEVETIRACETAM
     Indication: Product used for unknown indication
  5. CLONAZEPAM [Concomitant]
     Active Substance: CLONAZEPAM
     Indication: Product used for unknown indication
     Dates: start: 20120101

REACTIONS (8)
  - Fatigue [Unknown]
  - Mucolipidosis type I [Unknown]
  - Feeling abnormal [Unknown]
  - Movement disorder [Unknown]
  - Insomnia [Unknown]
  - Product administration interrupted [Unknown]
  - Product quality issue [Unknown]
  - Drug ineffective [Unknown]
